FAERS Safety Report 7279779-X (Version None)
Quarter: 2011Q1

REPORT INFORMATION
  Report Type: 
  Country: None (occurrence: None)
  Receive Date: 20110208
  Receipt Date: 20110131
  Transmission Date: 20110831
  Serious: Yes (Other)
  Sender: FDA-Public Use
  Company Number: US-AMGEN-USASP2011005966

PATIENT
  Age: 61 Year
  Sex: Female

DRUGS (2)
  1. ENBREL [Suspect]
     Indication: PSORIASIS
  2. ENBREL [Suspect]
     Indication: PSORIATIC ARTHROPATHY
     Dosage: 50 MG, QWK
     Dates: start: 20040504

REACTIONS (8)
  - PSORIATIC ARTHROPATHY [None]
  - DIZZINESS [None]
  - VISION BLURRED [None]
  - INJECTION SITE PAIN [None]
  - HEADACHE [None]
  - THERAPEUTIC RESPONSE DECREASED [None]
  - PSORIASIS [None]
  - INJECTION SITE ERYTHEMA [None]
